FAERS Safety Report 17702651 (Version 1)
Quarter: 2020Q3

REPORT INFORMATION
  Report Type: Report from Study
  Country: MX (occurrence: MX)
  Receive Date: 20200423
  Receipt Date: 20200423
  Transmission Date: 20201105
  Serious: Yes (Other)
  Sender: FDA-Public Use
  Company Number: NVSC2020MX108644

PATIENT
  Age: 53 Year
  Sex: Male
  Weight: 110 kg

DRUGS (2)
  1. CO?DIOVAN [Suspect]
     Active Substance: HYDROCHLOROTHIAZIDE\VALSARTAN
     Indication: BLOOD PRESSURE INCREASED
     Dosage: 1 DF, QD
     Route: 048
     Dates: start: 201905
  2. DIOVAN [Suspect]
     Active Substance: VALSARTAN
     Indication: BLOOD PRESSURE INCREASED
     Dosage: 80 MG (AS REQUIRED)
     Route: 048

REACTIONS (4)
  - Inappropriate schedule of product administration [Unknown]
  - Discomfort [Recovering/Resolving]
  - Asthenia [Recovering/Resolving]
  - Arterial rupture [Recovering/Resolving]

NARRATIVE: CASE EVENT DATE: 201905
